FAERS Safety Report 11494202 (Version 1)
Quarter: 2015Q3

REPORT INFORMATION
  Report Type: Spontaneous
  Country: US (occurrence: US)
  Receive Date: 20150911
  Receipt Date: 20150911
  Transmission Date: 20151125
  Serious: No
  Sender: FDA-Public Use
  Company Number: US-ROCHE-1015095

PATIENT
  Sex: Female
  Weight: 66.28 kg

DRUGS (5)
  1. PEGASYS [Suspect]
     Active Substance: PEGINTERFERON ALFA-2A
     Indication: CHRONIC HEPATITIS C
     Route: 065
     Dates: start: 20111027
  2. BOCEPREVIR [Concomitant]
     Active Substance: BOCEPREVIR
     Route: 065
  3. NEUPOGEN [Concomitant]
     Active Substance: FILGRASTIM
  4. RIBAVIRIN. [Suspect]
     Active Substance: RIBAVIRIN
     Indication: CHRONIC HEPATITIS C
     Dosage: DIVIDED DOSE
     Route: 065
     Dates: start: 20111027
  5. PROCRIT [Concomitant]
     Active Substance: ERYTHROPOIETIN

REACTIONS (2)
  - White blood cell count decreased [Unknown]
  - Weight decreased [Unknown]
